FAERS Safety Report 5488102-2 (Version None)
Quarter: 2007Q4

REPORT INFORMATION
  Report Type: 
  Country: None (occurrence: None)
  Receive Date: 20071017
  Receipt Date: 20070823
  Transmission Date: 20080405
  Serious: Yes (Death, Hospitalization, Other)
  Sender: FDA-Public Use
  Company Number: US-PURDUE-USA_2007_0029026

PATIENT
  Age: 72 Year
  Sex: Male

DRUGS (1)
  1. OXYCONTIN [Suspect]
     Indication: PAIN
     Dosage: UNK MG, UNK
     Route: 048
     Dates: start: 20000801, end: 20000801

REACTIONS (9)
  - ATRIAL FIBRILLATION [None]
  - CONFUSIONAL STATE [None]
  - DIZZINESS [None]
  - FALL [None]
  - FATIGUE [None]
  - GAIT DISTURBANCE [None]
  - HALLUCINATION [None]
  - LOSS OF CONSCIOUSNESS [None]
  - SOMNOLENCE [None]
